FAERS Safety Report 8208497-6 (Version None)
Quarter: 2012Q1

REPORT INFORMATION
  Report Type: 
  Country: None (occurrence: None)
  Receive Date: 20120314
  Receipt Date: 20120305
  Transmission Date: 20120608
  Serious: Yes (Other)
  Sender: FDA-Public Use
  Company Number: CA-JNJFOC-20120302304

PATIENT
  Sex: Female
  Weight: 68.5 kg

DRUGS (6)
  1. HYDROMORPH [Concomitant]
     Route: 048
     Dates: start: 20111101
  2. SYNTHROID [Concomitant]
     Route: 048
     Dates: start: 20060101
  3. GLYBURIDE [Concomitant]
     Route: 048
     Dates: start: 20090101
  4. PREVACID [Concomitant]
     Dosage: STARTED 13 YEARS AGO
     Route: 048
  5. REMICADE [Suspect]
     Indication: CROHN'S DISEASE
     Route: 042
     Dates: start: 20111221
  6. CIPROFLOXACIN [Concomitant]
     Dosage: STARTED 25 YEARS AGO
     Route: 048

REACTIONS (1)
  - NEPHROLITHIASIS [None]
